FAERS Safety Report 9168680 (Version 1)
Quarter: 2013Q1

REPORT INFORMATION
  Report Type: Report from Study
  Country: US (occurrence: US)
  Receive Date: 20130314
  Receipt Date: 20130314
  Transmission Date: 20140127
  Serious: Yes (Hospitalization)
  Sender: FDA-Public Use
  Company Number: US-RB-019403-10

PATIENT
  Sex: Female
  Weight: 67 kg

DRUGS (5)
  1. SUBOXONE FILM [Suspect]
     Indication: DRUG DEPENDENCE
     Dosage: SUBOXONE FILM
     Route: 060
     Dates: start: 201010
  2. LEVOTHYROXINE [Concomitant]
     Indication: THYROID DISORDER
     Dosage: DOSING DETAILS UNKNOWN
     Route: 048
  3. CELEXA [Concomitant]
     Indication: DEPRESSION
     Dosage: DOSING DETAILS UNKNOWN
     Route: 048
  4. WELLBUTRIN [Concomitant]
     Indication: DEPRESSION
     Dosage: DOSING DETAILS UNKNOWN
     Route: 048
  5. LISINOPRIL-HCTZ [Concomitant]
     Indication: HYPERTENSION
     Dosage: DOSING DETAILS UNKNOWN
     Route: 048

REACTIONS (17)
  - Pollakiuria [Not Recovered/Not Resolved]
  - Underdose [Unknown]
  - Spondylitis [Not Recovered/Not Resolved]
  - Muscular weakness [Not Recovered/Not Resolved]
  - Joint stiffness [Not Recovered/Not Resolved]
  - Hypoaesthesia [Not Recovered/Not Resolved]
  - Drug dependence [Recovered/Resolved]
  - Drug withdrawal syndrome [Recovered/Resolved]
  - Dysuria [Not Recovered/Not Resolved]
  - Asthenia [Recovered/Resolved]
  - Fibromyalgia [Not Recovered/Not Resolved]
  - Intussusception [Not Recovered/Not Resolved]
  - Weight decreased [Recovered/Resolved]
  - Musculoskeletal chest pain [Not Recovered/Not Resolved]
  - Constipation [Not Recovered/Not Resolved]
  - Cholelithiasis [Recovered/Resolved]
  - Abdominal pain [Unknown]
